FAERS Safety Report 12916728 (Version 1)
Quarter: 2016Q4

REPORT INFORMATION
  Report Type: Spontaneous
  Country: US (occurrence: US)
  Receive Date: 20161107
  Receipt Date: 20161107
  Transmission Date: 20170207
  Serious: No
  Sender: FDA-Public Use
  Company Number: US-JAZZ-2016-US-017320

PATIENT
  Sex: Female

DRUGS (25)
  1. LYRICA [Concomitant]
     Active Substance: PREGABALIN
  2. XYREM [Suspect]
     Active Substance: SODIUM OXYBATE
     Dosage: 5 G, FIRST DOSE
     Route: 048
     Dates: start: 201305
  3. GUAIFENESIN. [Concomitant]
     Active Substance: GUAIFENESIN
  4. PHENYLEPHRINE HCL [Concomitant]
     Active Substance: PHENYLEPHRINE HYDROCHLORIDE
  5. AMITIZA [Concomitant]
     Active Substance: LUBIPROSTONE
  6. XYREM [Suspect]
     Active Substance: SODIUM OXYBATE
     Dosage: DOSE ADJUSTMENTS
     Route: 048
     Dates: start: 200905, end: 201305
  7. HERBAL SLEEP [Concomitant]
  8. KLONOPIN [Concomitant]
     Active Substance: CLONAZEPAM
  9. PHENTERMINE HCL [Concomitant]
     Active Substance: PHENTERMINE HYDROCHLORIDE
  10. XYREM [Suspect]
     Active Substance: SODIUM OXYBATE
     Dosage: 3.75 G, SECOND DOSE
     Route: 048
     Dates: start: 201305
  11. GLUCOSAMINE HCL [Concomitant]
     Active Substance: GLUCOSAMINE
  12. MULTIVITAMINS [Concomitant]
     Active Substance: VITAMINS
  13. IMITREX [Concomitant]
     Active Substance: SUMATRIPTAN SUCCINATE
  14. XYREM [Suspect]
     Active Substance: SODIUM OXYBATE
     Indication: CHRONIC FATIGUE SYNDROME
     Dosage: 1.5 G, BID
     Route: 048
     Dates: start: 200904, end: 200905
  15. CLONAZEPAM. [Concomitant]
     Active Substance: CLONAZEPAM
  16. TRAMADOL HCL [Concomitant]
     Active Substance: TRAMADOL HYDROCHLORIDE
  17. ACETAMINOPHEN. [Concomitant]
     Active Substance: ACETAMINOPHEN
  18. MELATONIN [Concomitant]
     Active Substance: MELATONIN
  19. MAGNESIUM OXIDE. [Concomitant]
     Active Substance: MAGNESIUM OXIDE
  20. PREMARIN [Concomitant]
     Active Substance: ESTROGENS, CONJUGATED
  21. IBUPROFEN. [Concomitant]
     Active Substance: IBUPROFEN
  22. AMBIEN [Concomitant]
     Active Substance: ZOLPIDEM TARTRATE
  23. NEURONTIN [Concomitant]
     Active Substance: GABAPENTIN
  24. ESTROVEN [Concomitant]
     Active Substance: DIETARY SUPPLEMENT
  25. NASACORT ALLERGY 24HR [Concomitant]
     Active Substance: TRIAMCINOLONE ACETONIDE

REACTIONS (2)
  - Unevaluable event [Unknown]
  - Depression [Recovered/Resolved]
